FAERS Safety Report 7141534-9 (Version None)
Quarter: 2010Q4

REPORT INFORMATION
  Report Type: 
  Country: None (occurrence: None)
  Receive Date: 20101119
  Receipt Date: 20100810
  Transmission Date: 20110411
  Serious: Yes (Hospitalization)
  Sender: FDA-Public Use
  Company Number: UTC-001327

PATIENT
  Age: 52 Year
  Sex: Female
  Weight: 65.9 kg

DRUGS (8)
  1. TYVASO [Suspect]
     Dosage: 216 MCG (54 MCG, 4 IN 1 D), INHALATION
     Route: 055
     Dates: start: 20100713
  2. PREDNISONE TAB [Concomitant]
  3. COUMADIN [Concomitant]
  4. REVATIO [Concomitant]
  5. METOPROLOL SUCCINATE [Concomitant]
  6. CLONIDINE [Concomitant]
  7. TRACLEER [Concomitant]
  8. VICODIN [Concomitant]

REACTIONS (1)
  - PNEUMONIA [None]
